FAERS Safety Report 16210491 (Version 2)
Quarter: 2019Q2

REPORT INFORMATION
  Report Type: Spontaneous
  Country: US (occurrence: US)
  Receive Date: 20190418
  Receipt Date: 20190430
  Transmission Date: 20190711
  Serious: Yes (Hospitalization, Other)
  Sender: FDA-Public Use
  Company Number: US-AUROBINDO-AUR-APL-2019-020070

PATIENT

DRUGS (3)
  1. GLIPIZIDE. [Concomitant]
     Active Substance: GLIPIZIDE
     Indication: TYPE 1 DIABETES MELLITUS
     Dosage: LONG ACTING
     Route: 065
  2. INSULIN [Concomitant]
     Active Substance: INSULIN NOS
     Indication: TYPE 1 DIABETES MELLITUS
     Dosage: LONG ACTING
     Route: 065
  3. DEXAMETHASONE INJECTION [Suspect]
     Active Substance: DEXAMETHASONE
     Indication: PAIN
     Dosage: 12.5 MILLIGRAM, IN TOTAL, A R L5 TFESI
     Route: 008

REACTIONS (4)
  - Hyperglycaemic hyperosmolar nonketotic syndrome [Recovering/Resolving]
  - Asthenia [Unknown]
  - Loss of consciousness [Recovered/Resolved]
  - Flushing [Unknown]
